FAERS Safety Report 8397600-3 (Version None)
Quarter: 2012Q2

REPORT INFORMATION
  Report Type: 
  Country: None (occurrence: None)
  Receive Date: 20120531
  Receipt Date: 20120524
  Transmission Date: 20120825
  Serious: Yes (Other)
  Sender: FDA-Public Use
  Company Number: US-BAYER-2012-052596

PATIENT
  Age: 20 Year
  Sex: Female

DRUGS (3)
  1. YASMIN [Suspect]
     Dosage: UNK
     Dates: start: 20070601, end: 20071201
  2. YASMIN [Suspect]
     Dosage: UNK
     Dates: start: 20080501
  3. YASMIN [Suspect]
     Dosage: UNK
     Dates: start: 20041201, end: 20061201

REACTIONS (3)
  - PAIN [None]
  - CHOLELITHIASIS [None]
  - INJURY [None]
